FAERS Safety Report 19937175 (Version 3)
Quarter: 2022Q1

REPORT INFORMATION
  Report Type: Report from Study
  Country: RU (occurrence: RU)
  Receive Date: 20211010
  Receipt Date: 20220111
  Transmission Date: 20220423
  Serious: Yes (Other)
  Sender: FDA-Public Use
  Company Number: RU-SERVIER-S21010936

PATIENT

DRUGS (32)
  1. PEGASPARGASE [Suspect]
     Active Substance: PEGASPARGASE
     Indication: B-cell type acute leukaemia
     Dosage: 1725 U (2500 U/M?) ON DAY 3
     Route: 042
     Dates: start: 20210702, end: 20210702
  2. DEXAMETHASONE SODIUM PHOSPHATE [Suspect]
     Active Substance: DEXAMETHASONE SODIUM PHOSPHATE
     Indication: B-cell type acute leukaemia
     Dosage: 1 MG, QD
     Route: 048
     Dates: start: 20210628, end: 20210628
  3. DEXAMETHASONE SODIUM PHOSPHATE [Suspect]
     Active Substance: DEXAMETHASONE SODIUM PHOSPHATE
     Dosage: 2 MG, QD
     Route: 048
     Dates: start: 20210629, end: 20210629
  4. DEXAMETHASONE SODIUM PHOSPHATE [Suspect]
     Active Substance: DEXAMETHASONE SODIUM PHOSPHATE
     Dosage: 4 MG, QD
     Route: 048
     Dates: start: 20210630, end: 20210726
  5. DEXAMETHASONE SODIUM PHOSPHATE [Suspect]
     Active Substance: DEXAMETHASONE SODIUM PHOSPHATE
     Dosage: 2 MG, QD
     Route: 037
     Dates: start: 20210705, end: 20210705
  6. DEXAMETHASONE SODIUM PHOSPHATE [Suspect]
     Active Substance: DEXAMETHASONE SODIUM PHOSPHATE
     Dosage: 2 MG, QD
     Route: 037
     Dates: start: 20210712, end: 20210712
  7. DEXAMETHASONE SODIUM PHOSPHATE [Suspect]
     Active Substance: DEXAMETHASONE SODIUM PHOSPHATE
     Dosage: 2 MG, QD
     Route: 037
     Dates: start: 20210720, end: 20210720
  8. DEXAMETHASONE SODIUM PHOSPHATE [Suspect]
     Active Substance: DEXAMETHASONE SODIUM PHOSPHATE
     Dosage: 2 MG, QD
     Route: 037
     Dates: start: 20210727, end: 20210727
  9. DEXAMETHASONE SODIUM PHOSPHATE [Suspect]
     Active Substance: DEXAMETHASONE SODIUM PHOSPHATE
     Dosage: 2 MG, QD
     Route: 048
     Dates: start: 20210727, end: 20210729
  10. DEXAMETHASONE SODIUM PHOSPHATE [Suspect]
     Active Substance: DEXAMETHASONE SODIUM PHOSPHATE
     Dosage: 1 MG, QD
     Route: 051
     Dates: start: 20210730, end: 20210810
  11. VINCRISTINE SULFATE [Suspect]
     Active Substance: VINCRISTINE SULFATE
     Indication: B-cell type acute leukaemia
     Dosage: 1 MG, QD
     Route: 051
     Dates: start: 20210705, end: 20210705
  12. VINCRISTINE SULFATE [Suspect]
     Active Substance: VINCRISTINE SULFATE
     Dosage: 1 MG, QD
     Route: 051
     Dates: start: 20210712, end: 20210712
  13. VINCRISTINE SULFATE [Suspect]
     Active Substance: VINCRISTINE SULFATE
     Dosage: 1 MG, QD
     Route: 051
     Dates: start: 20210720, end: 20210720
  14. VINCRISTINE SULFATE [Suspect]
     Active Substance: VINCRISTINE SULFATE
     Dosage: 1 MG, QD
     Route: 051
     Dates: start: 20210727, end: 20210727
  15. DAUNORUBICIN HYDROCHLORIDE [Suspect]
     Active Substance: DAUNORUBICIN HYDROCHLORIDE
     Indication: B-cell type acute leukaemia
     Dosage: 30 MG, QD
     Route: 051
     Dates: start: 20210705, end: 20210705
  16. DAUNORUBICIN HYDROCHLORIDE [Suspect]
     Active Substance: DAUNORUBICIN HYDROCHLORIDE
     Dosage: 30 MG, QD
     Route: 051
     Dates: start: 20210720, end: 20210720
  17. METHOTREXATE [Suspect]
     Active Substance: METHOTREXATE
     Indication: B-cell type acute leukaemia
     Dosage: 10 MG, QD
     Route: 037
     Dates: start: 20210705, end: 20210705
  18. METHOTREXATE [Suspect]
     Active Substance: METHOTREXATE
     Dosage: 10 MG, QD
     Route: 037
     Dates: start: 20210712, end: 20210712
  19. METHOTREXATE [Suspect]
     Active Substance: METHOTREXATE
     Dosage: 10 MG, QD
     Route: 037
     Dates: start: 20210720, end: 20210720
  20. METHOTREXATE [Suspect]
     Active Substance: METHOTREXATE
     Dosage: 10 MG, QD
     Route: 037
     Dates: start: 20210727, end: 20210727
  21. CYTARABINE [Suspect]
     Active Substance: CYTARABINE
     Indication: B-cell type acute leukaemia
     Dosage: 40 MG, QD
     Route: 037
     Dates: start: 20210705, end: 20210705
  22. CYTARABINE [Suspect]
     Active Substance: CYTARABINE
     Dosage: 40 MG, QD
     Route: 037
     Dates: start: 20210712, end: 20210712
  23. CYTARABINE [Suspect]
     Active Substance: CYTARABINE
     Dosage: 40 MG, QD
     Route: 037
     Dates: start: 20210720, end: 20210720
  24. CYTARABINE [Suspect]
     Active Substance: CYTARABINE
     Dosage: 40 MG, QD
     Route: 037
     Dates: start: 20210727, end: 20210727
  25. TN UNSPECIFIED [Concomitant]
     Indication: Tumour lysis syndrome
     Dosage: 2000 ML, QD
     Route: 051
     Dates: start: 20210622
  26. TN UNSPECIFIED [Concomitant]
     Indication: Prophylaxis
  27. TN UNSPECIFIED [Concomitant]
     Indication: Detoxification
  28. TN UNSPECIFIED [Concomitant]
     Indication: Infection prophylaxis
     Dosage: 1500 MG, QD
     Route: 051
     Dates: start: 20210622
  29. TN UNSPECIFIED [Concomitant]
     Indication: Tumour lysis syndrome
     Dosage: 50 MG, TID
     Route: 048
     Dates: start: 20210628, end: 20210628
  30. TN UNSPECIFIED [Concomitant]
     Indication: Prophylaxis
  31. TN UNSPECIFIED [Concomitant]
     Indication: Pneumonia
     Dosage: 1440 MG, 1X/WEEK
     Route: 048
     Dates: start: 20210705
  32. TN UNSPECIFIED [Concomitant]
     Indication: Prophylaxis

REACTIONS (2)
  - Neutropenic colitis [Recovered/Resolved]
  - Partial seizures [Recovered/Resolved]

NARRATIVE: CASE EVENT DATE: 20210730
